FAERS Safety Report 24112773 (Version 3)
Quarter: 2025Q4

REPORT INFORMATION
  Report Type: Spontaneous
  Country: US (occurrence: None)
  Receive Date: 20240719
  Receipt Date: 20251202
  Transmission Date: 20260117
  Serious: No
  Sender: INCYTE
  Company Number: US-INCYTE CORPORATION-2024IN007324

PATIENT
  Age: 76 Year

DRUGS (1)
  1. OPZELURA [Suspect]
     Active Substance: RUXOLITINIB PHOSPHATE
     Indication: Alopecia
     Dosage: ONCE A DAY, AND TWICE A DAY
     Route: 065

REACTIONS (2)
  - Product physical issue [Unknown]
  - Off label use [Unknown]
